FAERS Safety Report 18336008 (Version 1)
Quarter: 2020Q4

REPORT INFORMATION
  Report Type: Spontaneous
  Country: TR (occurrence: TR)
  Receive Date: 20201001
  Receipt Date: 20201001
  Transmission Date: 20210113
  Serious: Yes (Death, Other)
  Sender: FDA-Public Use
  Company Number: TR-LUPIN PHARMACEUTICALS INC.-2020-06503

PATIENT
  Age: 3 Year
  Sex: Male

DRUGS (9)
  1. GENTAMICIN. [Suspect]
     Active Substance: GENTAMICIN
     Indication: PRODUCT USED FOR UNKNOWN INDICATION
     Dosage: UNK
     Route: 065
  2. HYPERTONIC SALINE SOLUTION [Concomitant]
     Active Substance: SODIUM CHLORIDE
     Indication: PRODUCT USED FOR UNKNOWN INDICATION
     Dosage: UNK
     Route: 065
  3. HYDROCORTISONE. [Suspect]
     Active Substance: HYDROCORTISONE
     Indication: ADRENOGENITAL SYNDROME
     Dosage: UNK (OVERDOSE; 32 MG/SQUARE.METER)
     Route: 065
  4. VANCOMYCIN [Suspect]
     Active Substance: VANCOMYCIN
     Indication: BACTERAEMIA
     Dosage: 40 MILLIGRAM/KILOGRAM, QD
     Route: 065
  5. MANNITOL. [Concomitant]
     Active Substance: MANNITOL
     Indication: PRODUCT USED FOR UNKNOWN INDICATION
     Dosage: UNK
     Route: 065
  6. CEFTRIAXONE. [Suspect]
     Active Substance: CEFTRIAXONE
     Indication: BACTERAEMIA
     Dosage: 80 MILLIGRAM/KILOGRAM, UNK
     Route: 065
  7. PREDNOL [DESONIDE] [Concomitant]
     Active Substance: DESONIDE
     Indication: PRODUCT USED FOR UNKNOWN INDICATION
     Dosage: 1MG/KG/MIN
     Route: 065
  8. DAPTOMYCIN. [Suspect]
     Active Substance: DAPTOMYCIN
     Indication: PRODUCT USED FOR UNKNOWN INDICATION
     Dosage: UNK
     Route: 065
  9. FLUDROCORTISONE [Suspect]
     Active Substance: FLUDROCORTISONE
     Indication: ADRENOGENITAL SYNDROME
     Dosage: UNK
     Route: 065

REACTIONS (19)
  - Brain oedema [Fatal]
  - Hyponatraemia [Fatal]
  - Sepsis [Unknown]
  - C-reactive protein increased [Recovering/Resolving]
  - Drug ineffective [Unknown]
  - Hypoglycaemia [Fatal]
  - Pyrexia [Unknown]
  - Immunosuppression [Unknown]
  - Confusional state [Unknown]
  - Infection [Unknown]
  - Overdose [Unknown]
  - Brain herniation [Fatal]
  - Seizure [Unknown]
  - Adrenocortical insufficiency acute [Unknown]
  - Metabolic disorder [Fatal]
  - Procalcitonin increased [Recovering/Resolving]
  - Vomiting [Unknown]
  - Bacteraemia [Unknown]
  - Respiratory failure [Unknown]
